FAERS Safety Report 10084676 (Version 1)
Quarter: 2014Q2

REPORT INFORMATION
  Report Type: Spontaneous
  Country: US (occurrence: US)
  Receive Date: 20140417
  Receipt Date: 20140417
  Transmission Date: 20141212
  Serious: No
  Sender: FDA-Public Use
  Company Number: US-PFIZER INC-2014103847

PATIENT
  Sex: Male

DRUGS (2)
  1. ATORVASTATIN CALCIUM [Suspect]
     Dosage: 80 MG, UNK
  2. ATORVASTATIN CALCIUM [Suspect]
     Dosage: 160 MG, UNK

REACTIONS (9)
  - Prescribed overdose [Unknown]
  - Pain in extremity [Unknown]
  - Fatigue [Unknown]
  - Dizziness [Unknown]
  - Memory impairment [Unknown]
  - Pain [Unknown]
  - Myalgia [Unknown]
  - Bone pain [Unknown]
  - Condition aggravated [Unknown]
